FAERS Safety Report 26081799 (Version 2)
Quarter: 2025Q4

REPORT INFORMATION
  Report Type: Spontaneous
  Country: CA (occurrence: CA)
  Receive Date: 20251124
  Receipt Date: 20251223
  Transmission Date: 20260118
  Serious: Yes (Death, Life-Threatening)
  Sender: CSL BEHRING
  Company Number: CA-CSL-11301

PATIENT
  Age: 83 Year
  Sex: Male

DRUGS (25)
  1. ALBUREX [Suspect]
     Active Substance: ALBUMIN HUMAN
     Indication: Ascites
     Dosage: 250 ML
     Route: 042
     Dates: start: 20251109, end: 20251109
  2. ALBUREX [Suspect]
     Active Substance: ALBUMIN HUMAN
     Indication: Hypervolaemia
     Dosage: 250 ML
     Route: 042
     Dates: start: 20251109, end: 20251109
  3. ALBUREX [Suspect]
     Active Substance: ALBUMIN HUMAN
     Indication: Hypertension
     Dosage: 250 ML
     Route: 042
     Dates: start: 20251109, end: 20251109
  4. ACETAMINOPHEN [Concomitant]
     Active Substance: ACETAMINOPHEN
  5. ALLOPURINOL [Concomitant]
     Active Substance: ALLOPURINOL
  6. BETAMETHASONE [Concomitant]
     Active Substance: BETAMETHASONE
  7. BISACODYL [Concomitant]
     Active Substance: BISACODYL
  8. BISOPROLOL [Concomitant]
     Active Substance: BISOPROLOL
  9. CETIRIZINE [Concomitant]
     Active Substance: CETIRIZINE HYDROCHLORIDE
  10. CYANOCOBALAMIN [Concomitant]
     Active Substance: CYANOCOBALAMIN
  11. EMPAGLIFLOZIN [Concomitant]
     Active Substance: EMPAGLIFLOZIN
  12. FERROUS SULFATE [Concomitant]
     Active Substance: FERROUS SULFATE
  13. FUROSEMIDE [Concomitant]
     Active Substance: FUROSEMIDE
  14. HEPARIN SODIUM [Concomitant]
     Active Substance: HEPARIN SODIUM
  15. LACTULOSE [Concomitant]
     Active Substance: LACTULOSE
  16. MELATONIN [Concomitant]
     Active Substance: MELATONIN
  17. MIDODRINE [Concomitant]
     Active Substance: MIDODRINE
  18. NITROGLYCERIN [Concomitant]
     Active Substance: NITROGLYCERIN
  19. ONDANSETRON [Concomitant]
     Active Substance: ONDANSETRON
  20. PANTOPRAZOLE [Concomitant]
     Active Substance: PANTOPRAZOLE
  21. PEG 3350 [Concomitant]
     Active Substance: POLYETHYLENE GLYCOL 3350
  22. SPIRONOLACTONE [Concomitant]
     Active Substance: SPIRONOLACTONE
  23. TAMSULOSIN [Concomitant]
     Active Substance: TAMSULOSIN
  24. TRELEGY ELLIPTA [Concomitant]
     Active Substance: FLUTICASONE FUROATE\UMECLIDINIUM BROMIDE\VILANTEROL TRIFENATATE
  25. VITAMIN D [Concomitant]
     Active Substance: VITAMIN D NOS

REACTIONS (7)
  - Transfusion-related circulatory overload [Fatal]
  - Dyspnoea [Fatal]
  - Tachypnoea [Fatal]
  - Wheezing [Fatal]
  - Stridor [Fatal]
  - Cough [Fatal]
  - Cyanosis [Fatal]

NARRATIVE: CASE EVENT DATE: 20251109
